FAERS Safety Report 15945246 (Version 3)
Quarter: 2021Q4

REPORT INFORMATION
  Report Type: Report from Study
  Country: US (occurrence: US)
  Receive Date: 20190211
  Receipt Date: 20211026
  Transmission Date: 20220303
  Serious: No
  Sender: FDA-Public Use
  Company Number: US-ACADIA PHARMACEUTICALS INC.-ACA-2019-011508

PATIENT
  Sex: Male

DRUGS (20)
  1. NUPLAZID [Suspect]
     Active Substance: PIMAVANSERIN TARTRATE
     Indication: Parkinson^s disease
     Dosage: 34 MG, QD CAPSULE
     Route: 048
     Dates: start: 20181121
  2. NUPLAZID [Suspect]
     Active Substance: PIMAVANSERIN TARTRATE
     Indication: Frontotemporal dementia
  3. SERTRALINE [Suspect]
     Active Substance: SERTRALINE HYDROCHLORIDE
  4. ESCITALOPRAM [Concomitant]
     Active Substance: ESCITALOPRAM OXALATE
  5. LIPITOR [Concomitant]
     Active Substance: ATORVASTATIN CALCIUM
     Dosage: 20 MILLIGRAM, QD
     Route: 048
  6. LIORESAL [Concomitant]
     Active Substance: BACLOFEN
     Dosage: 20 MILLIGRAM, BID AND ADDITIONAL DOSE PRN
     Route: 048
  7. COLACE [Concomitant]
     Active Substance: DOCUSATE SODIUM
     Dosage: 200 MILLIGRAM, QD (BEDTIME)
     Route: 048
  8. NEURONTIN [Concomitant]
     Active Substance: GABAPENTIN
     Dosage: 600 MILLIGRAM, BID
     Route: 048
  9. NORCO [Concomitant]
     Active Substance: ACETAMINOPHEN\HYDROCODONE BITARTRATE
     Dosage: 5/325 MG BID
     Route: 048
  10. PROBIOTIC BLEND [Concomitant]
     Dosage: 1 CAPSULE QD
     Route: 048
  11. ZESTRIL [Concomitant]
     Active Substance: LISINOPRIL
     Dosage: 10 MILLIGRAM, QD
     Route: 048
  12. VITAMINS [Concomitant]
     Active Substance: VITAMINS
     Dosage: 1 TABLET QD
     Route: 048
  13. RELAFEN [Concomitant]
     Active Substance: NABUMETONE
     Dosage: 750 MILLIGRAM, BID
     Route: 048
  14. PRILOSEC [Concomitant]
     Active Substance: OMEPRAZOLE MAGNESIUM
     Dosage: 40 MILLIGRAM, BID
     Route: 048
  15. HOMEOPATHICS [Concomitant]
     Active Substance: HOMEOPATHICS
     Dosage: 2 DOSES QD
     Route: 048
  16. EXELON [Concomitant]
     Active Substance: RIVASTIGMINE TARTRATE
     Indication: Dementia with Lewy bodies
     Dosage: 9.5 MG/24 HR QD
     Route: 062
  17. ZOLOFT [Concomitant]
     Active Substance: SERTRALINE HYDROCHLORIDE
     Dosage: 200 MILLIGRAM, QD BEDTIME
     Route: 048
  18. ASPIRIN [Concomitant]
     Active Substance: ASPIRIN
     Dosage: UNK
  19. ATORVASTATIN [Concomitant]
     Active Substance: ATORVASTATIN
  20. OMEPRAZOLE [Concomitant]
     Active Substance: OMEPRAZOLE

REACTIONS (3)
  - Condition aggravated [Unknown]
  - Condition aggravated [Unknown]
  - Parkinson^s disease [Not Recovered/Not Resolved]
